FAERS Safety Report 10192491 (Version 1)
Quarter: 2014Q2

REPORT INFORMATION
  Report Type: Spontaneous
  Country: PR (occurrence: PR)
  Receive Date: 20140523
  Receipt Date: 20140523
  Transmission Date: 20141212
  Serious: Yes (Other)
  Sender: FDA-Public Use
  Company Number: PR-BAYER-2014-073674

PATIENT
  Age: 32 Year
  Sex: Female

DRUGS (2)
  1. BETASERON [Suspect]
     Indication: MULTIPLE SCLEROSIS
     Dosage: 250 ?G, QOD
     Route: 058
  2. CIPROFLOXACIN [Suspect]
     Indication: INFECTION
     Dosage: UNK

REACTIONS (7)
  - Injection site infection [None]
  - Injection site ulcer [None]
  - Sepsis [None]
  - Necrosis [None]
  - Injection site swelling [None]
  - Injection site erythema [None]
  - Drug ineffective [None]
